FAERS Safety Report 10457985 (Version 2)
Quarter: 2014Q4

REPORT INFORMATION
  Report Type: Report from Study
  Country: BR (occurrence: BR)
  Receive Date: 20140916
  Receipt Date: 20141117
  Transmission Date: 20150528
  Serious: Yes (Other)
  Sender: FDA-Public Use
  Company Number: PHHY2014BR119726

PATIENT
  Sex: Male
  Weight: 90 kg

DRUGS (3)
  1. DIOVAN [Suspect]
     Active Substance: VALSARTAN
     Indication: HYPERTENSION
     Dosage: 1 DF (160 MG), UNK
     Route: 048
  2. ASPIRINA PREVENT [Concomitant]
     Active Substance: ASPIRIN
     Indication: CARDIOVASCULAR DISORDER
     Dosage: 1 DF (100 MG) DAILY
     Route: 048
  3. SINVASCOR [Concomitant]
     Active Substance: SIMVASTATIN
     Indication: BLOOD CHOLESTEROL ABNORMAL
     Dosage: 1 DF (20 MG) DAILY
     Route: 048

REACTIONS (5)
  - Hypertension [Recovered/Resolved]
  - Gout [Unknown]
  - Drug ineffective [Recovered/Resolved]
  - Diabetes mellitus [Unknown]
  - Hyperthyroidism [Unknown]
